FAERS Safety Report 12427786 (Version 6)
Quarter: 2016Q4

REPORT INFORMATION
  Report Type: Report from Study
  Country: CA (occurrence: CA)
  Receive Date: 20160602
  Receipt Date: 20161215
  Transmission Date: 20170207
  Serious: Yes (Hospitalization, Other)
  Sender: FDA-Public Use
  Company Number: CA-BRISTOL-MYERS SQUIBB COMPANY-BMS-2016-027671

PATIENT
  Age: 84 Year
  Sex: Female

DRUGS (2)
  1. ABATACEPT [Suspect]
     Active Substance: ABATACEPT
     Indication: RHEUMATOID ARTHRITIS
     Dosage: 500 MG, Q4WK
     Route: 042
     Dates: start: 20160408
  2. ABATACEPT [Suspect]
     Active Substance: ABATACEPT
     Indication: PRODUCT USED FOR UNKNOWN INDICATION
     Dosage: 500 MG, Q4WK
     Route: 042
     Dates: start: 20160408

REACTIONS (17)
  - Rheumatic disorder [Unknown]
  - Fall [Unknown]
  - Dizziness [Unknown]
  - Skin ulcer [Unknown]
  - Dysuria [Unknown]
  - Renal disorder [Unknown]
  - Pneumonia [Unknown]
  - Asthenia [Not Recovered/Not Resolved]
  - Mobility decreased [Unknown]
  - Insomnia [Unknown]
  - Bone pain [Unknown]
  - Abdominal pain lower [Unknown]
  - Urinary tract infection [Recovered/Resolved]
  - Oedema peripheral [Unknown]
  - Pollakiuria [Unknown]
  - Palpitations [Recovered/Resolved]
  - Fatigue [Not Recovered/Not Resolved]

NARRATIVE: CASE EVENT DATE: 20160408
